FAERS Safety Report 8456896-X (Version None)
Quarter: 2012Q2

REPORT INFORMATION
  Report Type: 
  Country: None (occurrence: None)
  Receive Date: 20120621
  Receipt Date: 20120612
  Transmission Date: 20120825
  Serious: Yes (Other)
  Sender: FDA-Public Use
  Company Number: JP-VERTEX PHARMACEUTICALS INC.-AE-2012-004059

PATIENT
  Age: 52 Year
  Sex: Male

DRUGS (10)
  1. PEG-INTRON [Concomitant]
     Route: 058
  2. TELAVIC (TELAPREVIR) [Suspect]
     Route: 048
     Dates: start: 20120204
  3. RIBAVIRIN [Concomitant]
     Route: 048
     Dates: start: 20120106
  4. LENDORMIN D [Concomitant]
     Route: 048
  5. TELAVIC (TELAPREVIR) [Suspect]
     Indication: HEPATITIS C
     Route: 048
     Dates: start: 20111216, end: 20120203
  6. PEG-INTRON [Concomitant]
     Indication: HEPATITIS C
     Route: 058
     Dates: start: 20111216, end: 20120119
  7. PEG-INTRON [Concomitant]
     Route: 058
     Dates: start: 20120126
  8. RIBAVIRIN [Concomitant]
     Route: 048
     Dates: start: 20120308
  9. LENDORMIN D [Concomitant]
     Route: 048
     Dates: start: 20111222
  10. RIBAVIRIN [Concomitant]
     Indication: HEPATITIS C
     Route: 048
     Dates: start: 20111216, end: 20120105

REACTIONS (1)
  - RETINAL HAEMORRHAGE [None]
